FAERS Safety Report 16465522 (Version 1)
Quarter: 2019Q2

REPORT INFORMATION
  Report Type: Spontaneous
  Country: US (occurrence: US)
  Receive Date: 20190621
  Receipt Date: 20190621
  Transmission Date: 20190711
  Serious: No
  Sender: FDA-Public Use
  Company Number: US-EGALET US INC-US-2018EGA000756

PATIENT

DRUGS (2)
  1. SPRIX [Suspect]
     Active Substance: KETOROLAC TROMETHAMINE
     Indication: PELVIC PAIN
     Dosage: ONE SPRAY IN EACH NOSTRIL EVER 6 HOURS
     Route: 045
     Dates: start: 20180909, end: 20180913
  2. SPRIX [Suspect]
     Active Substance: KETOROLAC TROMETHAMINE
     Indication: HEADACHE

REACTIONS (5)
  - Nasal discomfort [Unknown]
  - Inappropriate schedule of product administration [Recovered/Resolved]
  - Product quality issue [Recovered/Resolved]
  - Scab [Unknown]
  - Wrong technique in product usage process [Recovered/Resolved]

NARRATIVE: CASE EVENT DATE: 201809
